FAERS Safety Report 13084785 (Version 1)
Quarter: 2017Q1

REPORT INFORMATION
  Report Type: Spontaneous
  Country: PT (occurrence: PT)
  Receive Date: 20170104
  Receipt Date: 20170104
  Transmission Date: 20170428
  Serious: Yes (Hospitalization, Other)
  Sender: FDA-Public Use
  Company Number: PT-TEVA-725730ISR

PATIENT
  Age: 83 Year
  Sex: Male

DRUGS (8)
  1. INDAPAMIDE. [Concomitant]
     Active Substance: INDAPAMIDE
  2. EZETIMIBE. [Concomitant]
     Active Substance: EZETIMIBE
  3. VILDAGLIPTIN [Concomitant]
     Active Substance: VILDAGLIPTIN
  4. SINVASTATINA [Concomitant]
     Active Substance: SIMVASTATIN
  5. METFORMIN [Concomitant]
     Active Substance: METFORMIN HYDROCHLORIDE
  6. PANTOPRAZOLE 20MG [Suspect]
     Active Substance: PANTOPRAZOLE SODIUM
     Indication: PRODUCT USED FOR UNKNOWN INDICATION
     Dosage: 20 MILLIGRAM DAILY;
     Route: 065
  7. TICLOPIDINE [Concomitant]
     Active Substance: TICLOPIDINE
  8. CARVEDILOL. [Concomitant]
     Active Substance: CARVEDILOL

REACTIONS (3)
  - Hypomagnesaemia [Recovered/Resolved]
  - Hyponatraemia [Recovered/Resolved]
  - Inappropriate antidiuretic hormone secretion [Unknown]
